FAERS Safety Report 4775704-1 (Version None)
Quarter: 2005Q3

REPORT INFORMATION
  Report Type: 
  Country: None (occurrence: None)
  Receive Date: 20050921
  Receipt Date: 20050916
  Transmission Date: 20060218
  Serious: Yes (Other)
  Sender: FDA-Public Use
  Company Number: 005668

PATIENT
  Sex: Female

DRUGS (4)
  1. MEDROXYPROGESTERONE [Suspect]
     Dosage: ORAL
     Route: 048
     Dates: start: 19940101, end: 20020101
  2. PREMPHASE (PREMARIN;CYCRIN 14/14) [Suspect]
     Dosage: ORAL
     Route: 048
     Dates: start: 19940101, end: 20020101
  3. PROVERA [Suspect]
     Dosage: ORAL
     Route: 048
     Dates: start: 19940101, end: 20020101
  4. VIVELLE [Suspect]
     Dosage: TRANSDERMAL
     Route: 062
     Dates: start: 19940101, end: 20020101

REACTIONS (1)
  - BREAST CANCER FEMALE [None]
